FAERS Safety Report 8383691-2 (Version None)
Quarter: 2012Q2

REPORT INFORMATION
  Report Type: 
  Country: None (occurrence: None)
  Receive Date: 20120524
  Receipt Date: 20120515
  Transmission Date: 20120825
  Serious: Yes (Other)
  Sender: FDA-Public Use
  Company Number: PHHY2012CA043173

PATIENT
  Sex: Male
  Weight: 72.2 kg

DRUGS (22)
  1. FERROUS GLUCONATE [Concomitant]
     Dosage: 300 MG/DAY
  2. FERROUS FUMARATE [Concomitant]
  3. FLOMAX [Concomitant]
  4. LITHIUM CARBONATE [Concomitant]
     Dates: end: 20120227
  5. VITAMIN D [Concomitant]
  6. CLOZARIL [Suspect]
  7. PHENOTHIAZINE [Concomitant]
  8. CIPRO [Concomitant]
  9. CLONAZEPAM [Concomitant]
  10. CLONAZEPAM [Concomitant]
  11. COLACE [Concomitant]
  12. CRESTOR [Concomitant]
  13. CALCIUM [Concomitant]
  14. ASCORBIC ACID [Concomitant]
     Dosage: 500 MG/DAY
  15. DIVALPROEX SODIUM [Concomitant]
  16. HALDOL [Concomitant]
  17. LEVOTHYROXINE SODIUM [Concomitant]
  18. HYDROCORTISONE [Concomitant]
  19. GRAVOL TAB [Concomitant]
  20. FOLIC ACID [Concomitant]
  21. ARIPIPRAZOLE [Concomitant]
  22. ASPIRIN [Concomitant]

REACTIONS (24)
  - AGGRESSION [None]
  - BLOOD LACTATE DEHYDROGENASE INCREASED [None]
  - AGITATION [None]
  - HAEMOGLOBIN DECREASED [None]
  - HYPOTENSION [None]
  - ANAEMIA [None]
  - HYPOPHAGIA [None]
  - POLYDIPSIA [None]
  - HAEMATOCRIT DECREASED [None]
  - CATARACT [None]
  - VISION BLURRED [None]
  - DIVERTICULITIS [None]
  - BLOOD SODIUM DECREASED [None]
  - RED BLOOD CELL COUNT DECREASED [None]
  - HYPERPHAGIA [None]
  - EYELID PTOSIS [None]
  - WATER INTOXICATION [None]
  - RECTAL HAEMORRHAGE [None]
  - WEIGHT DECREASED [None]
  - DIZZINESS [None]
  - BRADYCARDIA [None]
  - ANXIETY [None]
  - BLOOD IRON DECREASED [None]
  - URINARY RETENTION [None]
